FAERS Safety Report 9753782 (Version 1)
Quarter: 2013Q4

REPORT INFORMATION
  Report Type: Spontaneous
  Country: US (occurrence: US)
  Receive Date: 20131213
  Receipt Date: 20131213
  Transmission Date: 20140711
  Serious: No
  Sender: FDA-Public Use
  Company Number: US-GILEAD-2010-0027009

PATIENT
  Sex: Female
  Weight: 49.89 kg

DRUGS (15)
  1. LETAIRIS [Suspect]
     Indication: PULMONARY ARTERIAL HYPERTENSION
     Route: 048
     Dates: start: 20090902
  2. REVATIO [Concomitant]
  3. DIGOXIN [Concomitant]
  4. TARCEVA [Concomitant]
  5. FUROSEMIDE [Concomitant]
  6. ALDACTONE [Concomitant]
  7. QVAR [Concomitant]
  8. PULMICORT [Concomitant]
  9. ATROVENT [Concomitant]
  10. SINGULAIR [Concomitant]
  11. XANAX [Concomitant]
  12. BENZONATATE [Concomitant]
  13. VFEND [Concomitant]
  14. FORADIL [Concomitant]
  15. AZITHROMYCIN [Concomitant]

REACTIONS (1)
  - Myalgia [Unknown]
